FAERS Safety Report 5822277-8 (Version None)
Quarter: 2008Q3

REPORT INFORMATION
  Report Type: 
  Country: None (occurrence: None)
  Receive Date: 20080714
  Receipt Date: 20080506
  Transmission Date: 20090109
  Serious: Yes (Other)
  Sender: FDA-Public Use
  Company Number: 562892

PATIENT
  Age: 45 Year
  Sex: Female

DRUGS (4)
  1. BONIVA [Suspect]
     Indication: OSTEOPOROSIS
     Dosage: ORAL
     Route: 048
     Dates: start: 20070501, end: 20071201
  2. ZOLOFT [Concomitant]
  3. MENEST [Concomitant]
  4. ALLEGRA [Concomitant]

REACTIONS (1)
  - GASTRIC ULCER [None]
